FAERS Safety Report 9251138 (Version 1)
Quarter: 2013Q1

REPORT INFORMATION
  Report Type: Spontaneous
  Country: US (occurrence: None)
  Receive Date: 20130305
  Receipt Date: 20130305
  Transmission Date: 20140127
  Serious: Yes (Hospitalization)
  Sender: FDA-Public Use
  Company Number: 163-21880-12081628

PATIENT
  Age: 72 Year
  Sex: Male
  Weight: 77.11 kg

DRUGS (5)
  1. REVLIMID [Suspect]
     Indication: PLASMA CELL MYELOMA
     Route: 048
     Dates: start: 2007
  2. VITAMINS (VITAMINS) [Concomitant]
  3. GAMMA GLOBULIN (IMMUNOGLOBULIN HUMAN NORMAL) [Concomitant]
  4. ALLOPURINOL [Concomitant]
  5. DEXAMETHASONE (DEXAMETHASONE) [Concomitant]

REACTIONS (4)
  - Gastrointestinal haemorrhage [None]
  - Pulmonary thrombosis [None]
  - Acute respiratory failure [None]
  - Gait disturbance [None]
